FAERS Safety Report 23277255 (Version 1)
Quarter: 2023Q4

REPORT INFORMATION
  Report Type: Spontaneous
  Country: US (occurrence: None)
  Receive Date: 20231208
  Receipt Date: 20231208
  Transmission Date: 20240110
  Serious: Yes (Death)
  Sender: FDA-Public Use
  Company Number: None

PATIENT
  Age: 84 Year
  Sex: Male
  Weight: 104.33 kg

DRUGS (12)
  1. CAPECITABINE [Suspect]
     Active Substance: CAPECITABINE
     Indication: Colon cancer
     Dosage: 1500MG BID 7 DAYS ON 7 DAYS OFF ORAL?
     Route: 048
     Dates: start: 20230920, end: 20231107
  2. IMODIUM [Concomitant]
     Active Substance: LOPERAMIDE HYDROCHLORIDE
  3. LASIX [Concomitant]
     Active Substance: FUROSEMIDE
  4. LIPITOR [Concomitant]
     Active Substance: ATORVASTATIN CALCIUM
  5. NIZORAL [Concomitant]
     Active Substance: KETOCONAZOLE
  6. PEPCID [Concomitant]
     Active Substance: FAMOTIDINE
  7. PROCHLORPERAZINE [Concomitant]
     Active Substance: PROCHLORPERAZINE
  8. SINGULAIR [Concomitant]
     Active Substance: MONTELUKAST SODIUM
  9. VITAMIN B12 [Concomitant]
     Active Substance: CYANOCOBALAMIN
  10. VITAMIN D3 [Concomitant]
     Active Substance: CHOLECALCIFEROL
  11. XALATAN [Concomitant]
     Active Substance: LATANOPROST
  12. XELODA [Concomitant]
     Active Substance: CAPECITABINE

REACTIONS (3)
  - Colon cancer [None]
  - Malignant neoplasm progression [None]
  - Hospice care [None]

NARRATIVE: CASE EVENT DATE: 20231116
